FAERS Safety Report 26197316 (Version 1)
Quarter: 2025Q4

REPORT INFORMATION
  Report Type: Report from Study
  Country: US (occurrence: US)
  Receive Date: 20251224
  Receipt Date: 20251224
  Transmission Date: 20260117
  Serious: Yes (Other)
  Sender: MALLINCKRODT
  Company Number: US-MALLINCKRODT-MNK202508038

PATIENT
  Sex: Male
  Weight: 240 kg

DRUGS (2)
  1. CORTICOTROPIN [Suspect]
     Active Substance: CORTICOTROPIN
     Indication: Sarcoidosis
     Dosage: 80 UNITS
  2. CORTICOTROPIN [Suspect]
     Active Substance: CORTICOTROPIN
     Dosage: 80 UNITS

REACTIONS (6)
  - Sarcoidosis [Unknown]
  - Myalgia [Unknown]
  - Anxiety [Unknown]
  - Cyst [Unknown]
  - Balance disorder [Unknown]
  - Oedema [Unknown]
